FAERS Safety Report 6317180-3 (Version None)
Quarter: 2009Q3

REPORT INFORMATION
  Report Type: 
  Country: None (occurrence: None)
  Receive Date: 20090819
  Receipt Date: 20090807
  Transmission Date: 20100115
  Serious: Yes (Death)
  Sender: FDA-Public Use
  Company Number: 232619K08USA

PATIENT
  Age: 35 Year
  Sex: Male
  Weight: 76 kg

DRUGS (19)
  1. NOVANTRONE [Suspect]
     Indication: MULTIPLE SCLEROSIS
     Dates: start: 20030101, end: 20041001
  2. REBIF [Suspect]
     Indication: MULTIPLE SCLEROSIS
     Dosage: 44 MCG, 3 IN 1 WEEKS, SUBCUTANEOUS
     Route: 058
     Dates: start: 20070207, end: 20080401
  3. VICODIN [Suspect]
     Dates: start: 20070207, end: 20080401
  4. METHADONE HCL [Suspect]
     Dosage: 5 MG, 3 IN 1 DAYS
     Dates: start: 20080304, end: 20080401
  5. TRIAZOLAM [Suspect]
     Indication: SLEEP DISORDER
     Dosage: 0.5 MG, 1 IN 1 DAYS, ORAL
     Route: 048
     Dates: start: 20070207, end: 20080401
  6. AMITRIPTYLINE HYDROCHLORIDE [Concomitant]
  7. CALCIUM 600 PLUS VITAMIN D (CALCIUM WITH VITAMIN D) [Concomitant]
  8. CEPHALEXIN (CEFALEXIN /00145501/) [Concomitant]
  9. VALIUM [Concomitant]
  10. ENABLEX ER (DARIFENACIN) [Concomitant]
  11. GABAPENTIN [Concomitant]
  12. KEPPRA [Concomitant]
  13. LEXAPRO [Concomitant]
  14. LIDODERM PATCH (LIDOCAINE /00033401/) [Concomitant]
  15. MULTIVITAMIN [Concomitant]
  16. POTASSIUM (POTASSIUM /00031401/) [Concomitant]
  17. PREDNISONE (PREDNISONE /00044701/) [Concomitant]
  18. TIZANIDINE HCL [Concomitant]
  19. VIAGRA [Concomitant]

REACTIONS (3)
  - DISEASE PROGRESSION [None]
  - EJECTION FRACTION DECREASED [None]
  - EPILEPSY [None]
